FAERS Safety Report 14686009 (Version 1)
Quarter: 2018Q1

REPORT INFORMATION
  Report Type: Spontaneous
  Country: US (occurrence: US)
  Receive Date: 20180327
  Receipt Date: 20180327
  Transmission Date: 20180509
  Serious: No
  Sender: FDA-Public Use
  Company Number: US-PFIZER INC-2018119316

PATIENT
  Sex: Female

DRUGS (1)
  1. LIPITOR [Suspect]
     Active Substance: ATORVASTATIN CALCIUM
     Dosage: 10 MG, UNK
     Dates: end: 20180319

REACTIONS (6)
  - Tendon disorder [Unknown]
  - Pain in extremity [Unknown]
  - Limb injury [Unknown]
  - Musculoskeletal disorder [Unknown]
  - Muscle disorder [Unknown]
  - Bone disorder [Unknown]
